FAERS Safety Report 8733068 (Version 4)
Quarter: 2012Q4

REPORT INFORMATION
  Report Type: 
  Country: FR (occurrence: FR)
  Receive Date: 20120820
  Receipt Date: 20121002
  Transmission Date: 20130627
  Serious: Yes (Other)
  Sender: FDA-Public Use
  Company Number: FR-ROCHE-1101006

PATIENT
  Age: 84 Year
  Sex: Male
  Weight: 70 kg

DRUGS (13)
  1. MABTHERA [Suspect]
     Indication: CHRONIC LYMPHOCYTIC LEUKAEMIA
     Dosage: EVERY 28 DAYS
     Route: 042
     Dates: start: 20111122
  2. MABTHERA [Suspect]
     Dosage: EVERY 28 DAYS
     Route: 042
     Dates: start: 20120207
  3. MABTHERA [Suspect]
     Route: 042
     Dates: start: 20120306
  4. MABTHERA [Suspect]
     Route: 042
     Dates: start: 20120403
  5. MABTHERA [Suspect]
     Route: 042
     Dates: start: 20120501, end: 20120502
  6. BENDAMUSTINE [Suspect]
     Indication: CHRONIC LYMPHOCYTIC LEUKAEMIA
     Route: 042
     Dates: start: 20111122
  7. BENDAMUSTINE [Suspect]
     Route: 042
     Dates: start: 20120207
  8. BENDAMUSTINE [Suspect]
     Route: 042
     Dates: start: 20120306
  9. BENDAMUSTINE [Suspect]
     Route: 042
     Dates: start: 20120403
  10. BENDAMUSTINE [Suspect]
     Route: 042
     Dates: start: 20120501, end: 20120502
  11. FILGRASTIM [Suspect]
     Indication: CHRONIC LYMPHOCYTIC LEUKAEMIA
     Route: 058
     Dates: start: 20120212, end: 20120221
  12. FILGRASTIM [Suspect]
     Route: 058
     Dates: start: 20120311, end: 20120322
  13. FILGRASTIM [Suspect]
     Route: 058
     Dates: start: 20120408, end: 20120419

REACTIONS (2)
  - Squamous cell carcinoma [Recovered/Resolved with Sequelae]
  - Malignant melanoma [Recovered/Resolved with Sequelae]
